FAERS Safety Report 10206708 (Version 1)
Quarter: 2014Q2

REPORT INFORMATION
  Report Type: Spontaneous
  Country: US (occurrence: None)
  Receive Date: 20140527
  Receipt Date: 20140527
  Transmission Date: 20141212
  Serious: Yes (Hospitalization)
  Sender: FDA-Public Use
  Company Number: None

PATIENT
  Age: 61 Year
  Sex: Female

DRUGS (23)
  1. TIKOSYN [Suspect]
     Indication: ATRIAL FIBRILLATION
     Route: 048
     Dates: start: 20130724
  2. POTASSIUM KCL [Concomitant]
  3. LASIX [Concomitant]
  4. OMEPRAZOLE [Concomitant]
  5. NEURONTIN [Concomitant]
  6. NORVASC [Concomitant]
  7. LIVASA [Concomitant]
  8. NITRO SB [Concomitant]
  9. COUMADIN [Concomitant]
  10. CLONAZEPAM [Concomitant]
  11. COLACE [Concomitant]
  12. TYLENOL OTC [Concomitant]
  13. MAGNESIUM [Concomitant]
  14. VICODIN [Concomitant]
  15. REQUIP [Concomitant]
  16. TOPOROL [Concomitant]
  17. PROVENTIL INHALER [Concomitant]
  18. ULTRAM [Concomitant]
  19. ALLERGY CLEAR OTC [Concomitant]
  20. WELLBUTRIN [Concomitant]
  21. SIDAMIL [Concomitant]
  22. SYNTHROID [Concomitant]
  23. ZITHROMAX [Concomitant]

REACTIONS (4)
  - Electrocardiogram QT prolonged [None]
  - Injury [None]
  - Fall [None]
  - Loss of consciousness [None]
